FAERS Safety Report 5505033-X (Version None)
Quarter: 2007Q4

REPORT INFORMATION
  Report Type: 
  Country: None (occurrence: None)
  Receive Date: 20071102
  Receipt Date: 20071022
  Transmission Date: 20080405
  Serious: Yes (Hospitalization)
  Sender: FDA-Public Use
  Company Number: GB-ROCHE-527074

PATIENT
  Age: 40 Year
  Sex: Male
  Weight: 127 kg

DRUGS (2)
  1. ORLISTAT [Suspect]
     Indication: OBESITY
     Route: 048
     Dates: start: 20070604
  2. AMITRIPTYLINE HCL [Concomitant]
     Route: 048

REACTIONS (1)
  - CELLULITIS [None]
